FAERS Safety Report 10352578 (Version 1)
Quarter: 2014Q3

REPORT INFORMATION
  Report Type: Spontaneous
  Country: US (occurrence: US)
  Receive Date: 20140730
  Receipt Date: 20140730
  Transmission Date: 20150326
  Serious: No
  Sender: FDA-Public Use
  Company Number: US-ABBVIE-14P-163-1192268-00

PATIENT
  Age: 51 Year
  Sex: Female
  Weight: 81.27 kg

DRUGS (4)
  1. XYRAL [Concomitant]
     Indication: HYPERSENSITIVITY
  2. SYNTHROID [Suspect]
     Active Substance: LEVOTHYROXINE SODIUM
     Indication: AUTOIMMUNE THYROIDITIS
     Dates: start: 201304, end: 201306
  3. OMEPRAZOLE. [Concomitant]
     Active Substance: OMEPRAZOLE
     Indication: GASTROOESOPHAGEAL REFLUX DISEASE
  4. SYNTHROID [Suspect]
     Active Substance: LEVOTHYROXINE SODIUM
     Indication: AUTOIMMUNE THYROIDITIS
     Dates: start: 201306

REACTIONS (16)
  - Blood thyroid stimulating hormone increased [Recovered/Resolved]
  - Feeling abnormal [Not Recovered/Not Resolved]
  - Fatigue [Not Recovered/Not Resolved]
  - Weight increased [Not Recovered/Not Resolved]
  - Nervousness [Not Recovered/Not Resolved]
  - Alopecia [Not Recovered/Not Resolved]
  - Pruritus [Unknown]
  - Heart rate abnormal [Unknown]
  - Arthralgia [Unknown]
  - Headache [Not Recovered/Not Resolved]
  - Hair texture abnormal [Not Recovered/Not Resolved]
  - Myalgia [Not Recovered/Not Resolved]
  - Asthenia [Not Recovered/Not Resolved]
  - Pallor [Unknown]
  - Dyspnoea [Not Recovered/Not Resolved]
  - Dysphonia [Not Recovered/Not Resolved]

NARRATIVE: CASE EVENT DATE: 201306
